FAERS Safety Report 5355243-X (Version None)
Quarter: 2007Q2

REPORT INFORMATION
  Report Type: 
  Country: None (occurrence: None)
  Receive Date: 20070613
  Receipt Date: 20070611
  Transmission Date: 20071010
  Serious: Yes (Death)
  Sender: FDA-Public Use
  Company Number: JP-JNJFOC-20070602406

PATIENT
  Age: 60 Year
  Sex: Male

DRUGS (4)
  1. ITRIZOLE [Suspect]
     Indication: BRONCHOPULMONARY ASPERGILLOSIS
     Dosage: 200-400 MG
     Route: 041
  2. GASTER [Concomitant]
     Route: 048
  3. SELBEX [Concomitant]
     Route: 048
  4. IRON COMPOUNDS AND PREPARATIONS [Concomitant]
     Route: 048

REACTIONS (5)
  - ANOREXIA [None]
  - DEATH [None]
  - DYSPNOEA [None]
  - HYPOKALAEMIA [None]
  - HYPONATRAEMIA [None]
